FAERS Safety Report 24330484 (Version 1)
Quarter: 2024Q3

REPORT INFORMATION
  Report Type: Report from Study
  Country: JP (occurrence: JP)
  Receive Date: 20240918
  Receipt Date: 20240918
  Transmission Date: 20241016
  Serious: Yes (Other)
  Sender: ROCHE
  Company Number: JP-ROCHE-10000079366

PATIENT

DRUGS (6)
  1. ATEZOLIZUMAB [Suspect]
     Active Substance: ATEZOLIZUMAB
     Indication: Hepatocellular carcinoma
     Route: 065
  2. BEVACIZUMAB [Suspect]
     Active Substance: BEVACIZUMAB
     Indication: Hepatocellular carcinoma
     Route: 065
  3. TREMELIMUMAB [Suspect]
     Active Substance: TREMELIMUMAB
     Indication: Hepatocellular carcinoma
     Dosage: ADMINISTERED ON DAY 1
     Route: 065
  4. DURVALUMAB [Suspect]
     Active Substance: DURVALUMAB
     Indication: Hepatocellular carcinoma
     Dosage: ADMINISTERED ON DAY 1
     Route: 065
  5. LENVATINIB [Suspect]
     Active Substance: LENVATINIB
     Indication: Hepatocellular carcinoma
     Route: 065
  6. SORAFENIB [Suspect]
     Active Substance: SORAFENIB
     Indication: Hepatocellular carcinoma
     Route: 065

REACTIONS (18)
  - Diarrhoea [Unknown]
  - Colitis [Unknown]
  - Rash [Unknown]
  - Hepatic function abnormal [Unknown]
  - Thrombocytopenia [Unknown]
  - Adrenal insufficiency [Unknown]
  - Decreased appetite [Unknown]
  - Gallbladder rupture [Unknown]
  - Skin infection [Unknown]
  - Pruritus [Unknown]
  - Nausea [Unknown]
  - Pancreatitis [Unknown]
  - Fatigue [Unknown]
  - Pyrexia [Unknown]
  - Gastrointestinal haemorrhage [Unknown]
  - Hypopituitarism [Unknown]
  - Cytokine release syndrome [Unknown]
  - Dysphonia [Unknown]
